FAERS Safety Report 25483108 (Version 1)
Quarter: 2025Q2

REPORT INFORMATION
  Report Type: Other
  Country: AU (occurrence: AU)
  Receive Date: 20250626
  Receipt Date: 20250626
  Transmission Date: 20250717
  Serious: Yes (Hospitalization, Other)
  Sender: CREEKWOOD PHARMACEUTICALS LLC
  Company Number: AU-Creekwood Pharmaceuticals LLC-2179437

PATIENT
  Age: 61 Year
  Sex: Male

DRUGS (7)
  1. FENOFIBRATE [Suspect]
     Active Substance: FENOFIBRATE
     Indication: Product used for unknown indication
  2. GLICLAZIDE [Concomitant]
     Active Substance: GLICLAZIDE
  3. SEMAGLUTIDE [Concomitant]
     Active Substance: SEMAGLUTIDE
  4. OLANZAPINE [Concomitant]
     Active Substance: OLANZAPINE
  5. FLUVOXAMINE MALEATE [Concomitant]
     Active Substance: FLUVOXAMINE MALEATE
  6. METFORMIN [Concomitant]
     Active Substance: METFORMIN HYDROCHLORIDE
  7. SITAGLIPTIN [Concomitant]
     Active Substance: SITAGLIPTIN

REACTIONS (3)
  - Nephropathy [Recovered/Resolved]
  - Medication error [Unknown]
  - Acute kidney injury [Recovered/Resolved]
